FAERS Safety Report 6171408-1 (Version None)
Quarter: 2009Q2

REPORT INFORMATION
  Report Type: 
  Country: None (occurrence: None)
  Receive Date: 20090429
  Receipt Date: 20090417
  Transmission Date: 20091009
  Serious: Yes (Hospitalization, Other)
  Sender: FDA-Public Use
  Company Number: US-PFIZER INC-2007011018

PATIENT
  Sex: Female
  Weight: 52.2 kg

DRUGS (11)
  1. CHANTIX [Suspect]
     Indication: EX-TOBACCO USER
     Dates: start: 20060101, end: 20070101
  2. SPIRIVA [Interacting]
     Indication: EMPHYSEMA
  3. ADVAIR HFA [Interacting]
     Indication: EMPHYSEMA
  4. XOPENEX [Interacting]
     Indication: EMPHYSEMA
  5. ERLOTINIB [Concomitant]
  6. LASIX [Concomitant]
  7. POTASSIUM CHLORIDE [Concomitant]
  8. ACETYLSALICYLIC ACID [Concomitant]
  9. ATIVAN [Concomitant]
  10. OXYCODONE [Concomitant]
  11. PREDNISONE [Concomitant]

REACTIONS (3)
  - DRUG EFFECT DECREASED [None]
  - DRUG INTERACTION [None]
  - DYSPNOEA [None]
